FAERS Safety Report 13271246 (Version 9)
Quarter: 2017Q3

REPORT INFORMATION
  Report Type: Report from Study
  Country: US (occurrence: US)
  Receive Date: 20170226
  Receipt Date: 20170918
  Transmission Date: 20171127
  Serious: Yes (Disabling)
  Sender: FDA-Public Use
  Company Number: PHEH2017US005763

PATIENT
  Age: 53 Year
  Sex: Female

DRUGS (2)
  1. GILENYA [Suspect]
     Active Substance: FINGOLIMOD HYDROCHLORIDE
     Indication: MULTIPLE SCLEROSIS
     Dosage: 0.5 MG, QD
     Route: 048
  2. GILENYA [Suspect]
     Active Substance: FINGOLIMOD HYDROCHLORIDE
     Dosage: 0.5 MG, QOD
     Route: 048

REACTIONS (10)
  - General physical health deterioration [Unknown]
  - Prescribed underdose [Unknown]
  - Cognitive disorder [Unknown]
  - Amnesia [Unknown]
  - Cough [Unknown]
  - Lymphocyte count decreased [Recovering/Resolving]
  - Nasopharyngitis [Unknown]
  - Speech disorder [Unknown]
  - Urinary incontinence [Unknown]
  - Temperature intolerance [Unknown]

NARRATIVE: CASE EVENT DATE: 20160618
